FAERS Safety Report 4600332-8 (Version None)
Quarter: 2005Q1

REPORT INFORMATION
  Report Type: 
  Country: None (occurrence: None)
  Receive Date: 20050303
  Receipt Date: 20050303
  Transmission Date: 20050727
  Serious: Yes (Disabling)
  Sender: FDA-Public Use
  Company Number: None

PATIENT
  Age: 61 Year
  Sex: Male
  Weight: 74.8435 kg

DRUGS (1)
  1. COLDE-EEZE NASAL SPRAY QUIGLEY [Suspect]
     Indication: NASOPHARYNGITIS
     Dosage: ONE ONCE NASAL
     Route: 045
     Dates: start: 20050225, end: 20050225

REACTIONS (2)
  - ANOSMIA [None]
  - NASAL DISCOMFORT [None]
